FAERS Safety Report 6264404-7 (Version None)
Quarter: 2009Q3

REPORT INFORMATION
  Report Type: 
  Country: None (occurrence: None)
  Receive Date: 20090710
  Receipt Date: 20090702
  Transmission Date: 20100115
  Serious: Yes (Life-Threatening)
  Sender: FDA-Public Use
  Company Number: B0582892A

PATIENT
  Sex: Female

DRUGS (3)
  1. AMOXICILLIN AND CLAVULANATE POTASSIUM [Suspect]
     Indication: COUGH
     Route: 048
     Dates: start: 20090429, end: 20090429
  2. SERETIDE [Concomitant]
     Route: 055
  3. DIHYDROCODEINE BITARTRATE INJ [Concomitant]
     Route: 048

REACTIONS (7)
  - ABDOMINAL PAIN [None]
  - CHILLS [None]
  - CYANOSIS [None]
  - DYSPNOEA [None]
  - HYPERTHERMIA [None]
  - HYPOXIA [None]
  - VASOCONSTRICTION [None]
